FAERS Safety Report 18706846 (Version 1)
Quarter: 2021Q1

REPORT INFORMATION
  Report Type: Spontaneous
  Country: CN (occurrence: CN)
  Receive Date: 20210106
  Receipt Date: 20210106
  Transmission Date: 20210419
  Serious: Yes (Life-Threatening, Hospitalization, Other)
  Sender: FDA-Public Use
  Company Number: CN-PFIZER INC-2021001018

PATIENT
  Age: 57 Year
  Sex: Male
  Weight: 95 kg

DRUGS (4)
  1. TAZOCIN [Suspect]
     Active Substance: PIPERACILLIN SODIUM\TAZOBACTAM SODIUM
     Indication: ANTI-INFECTIVE THERAPY
     Dosage: 4.5 G, 3X/DAY
     Route: 041
     Dates: start: 20191025, end: 20191029
  2. VFEND [Suspect]
     Active Substance: VORICONAZOLE
     Indication: ANTIFUNGAL TREATMENT
     Dosage: 0.3 G, 2X/DAY
     Route: 041
     Dates: start: 20191023, end: 20191030
  3. SODIUM CHLORIDE. [Concomitant]
     Active Substance: SODIUM CHLORIDE
     Indication: VEHICLE SOLUTION USE
     Dosage: 100 ML, 3X/DAY
     Route: 041
     Dates: start: 20191025, end: 20191029
  4. SODIUM CHLORIDE. [Concomitant]
     Active Substance: SODIUM CHLORIDE
     Indication: VEHICLE SOLUTION USE
     Dosage: 200 ML, 2X/DAY
     Route: 041
     Dates: start: 20191023, end: 20191030

REACTIONS (8)
  - Acute hepatic failure [Recovering/Resolving]
  - Ocular icterus [Unknown]
  - Transaminases increased [Unknown]
  - Cholestasis [Unknown]
  - Blood glucose decreased [Unknown]
  - Prothrombin level decreased [Recovering/Resolving]
  - Bilirubin conjugated increased [Not Recovered/Not Resolved]
  - Jaundice [Not Recovered/Not Resolved]

NARRATIVE: CASE EVENT DATE: 20191103
